FAERS Safety Report 5682508-4 (Version None)
Quarter: 2008Q1

REPORT INFORMATION
  Report Type: 
  Country: None (occurrence: None)
  Receive Date: 20080326
  Receipt Date: 20080326
  Transmission Date: 20080703
  Serious: Yes (Other)
  Sender: FDA-Public Use
  Company Number: None

PATIENT
  Sex: Male
  Weight: 96 kg

DRUGS (2)
  1. TARGRETIN [Suspect]
     Indication: ACUTE MYELOID LEUKAEMIA
     Dosage: 300MG BID PO
     Route: 048
     Dates: start: 20071215
  2. TARGRETIN [Suspect]
     Indication: ACUTE MYELOID LEUKAEMIA
     Dosage: 300MG BID PO
     Route: 048
     Dates: start: 20071219

REACTIONS (4)
  - BLOOD TRIGLYCERIDES INCREASED [None]
  - CONDITION AGGRAVATED [None]
  - HIGH DENSITY LIPOPROTEIN DECREASED [None]
  - SEPSIS [None]
